FAERS Safety Report 5646630-0 (Version None)
Quarter: 2008Q1

REPORT INFORMATION
  Report Type: 
  Country: None (occurrence: None)
  Receive Date: 20080303
  Receipt Date: 20080222
  Transmission Date: 20080703
  Serious: Yes (Other)
  Sender: FDA-Public Use
  Company Number: PHRM2008FR00900

PATIENT
  Age: 78 Year
  Sex: Male

DRUGS (4)
  1. LIORESAL [Suspect]
     Indication: MUSCLE SPASTICITY
     Dosage: 10 MG, TID
     Route: 048
     Dates: start: 20080201, end: 20080201
  2. LOXEN [Concomitant]
     Indication: HYPERTENSION
     Dates: start: 20080201
  3. HEMIGOXINE [Concomitant]
  4. KARDEGIC [Concomitant]

REACTIONS (7)
  - ABNORMAL BEHAVIOUR [None]
  - ANOREXIA [None]
  - CONFUSIONAL STATE [None]
  - DEHYDRATION [None]
  - EPILEPSY [None]
  - HALLUCINATION [None]
  - URINARY RETENTION [None]
